FAERS Safety Report 4727695-7 (Version None)
Quarter: 2005Q3

REPORT INFORMATION
  Report Type: 
  Country: None (occurrence: None)
  Receive Date: 20050725
  Receipt Date: 20050428
  Transmission Date: 20060218
  Serious: No
  Sender: FDA-Public Use
  Company Number: USA050496923

PATIENT
  Age: 7 Year
  Sex: Male
  Weight: 32 kg

DRUGS (1)
  1. STRATTERA [Suspect]
     Indication: PSYCHOMOTOR HYPERACTIVITY
     Dosage: 40 MG DAY
     Dates: start: 20050301

REACTIONS (4)
  - CONDUCT DISORDER [None]
  - DECREASED APPETITE [None]
  - LETHARGY [None]
  - NAUSEA [None]
